FAERS Safety Report 7750826-1 (Version None)
Quarter: 2011Q3

REPORT INFORMATION
  Report Type: 
  Country: None (occurrence: None)
  Receive Date: 20110825
  Receipt Date: 20110602
  Transmission Date: 20111222
  Serious: No
  Sender: FDA-Public Use
  Company Number: 330187

PATIENT
  Age: 75 Year
  Sex: Male
  Weight: 108.8 kg

DRUGS (2)
  1. VICTOZA [Suspect]
     Indication: TYPE 2 DIABETES MELLITUS
     Dosage: 0.6 MG, QD, SUBCUTANEOUS
     Route: 058
     Dates: start: 20110501
  2. METFORMIN HCL [Concomitant]

REACTIONS (2)
  - BLOOD GLUCOSE FLUCTUATION [None]
  - FATIGUE [None]
